FAERS Safety Report 25362017 (Version 1)
Quarter: 2025Q2

REPORT INFORMATION
  Report Type: Report from Study
  Country: NL (occurrence: NL)
  Receive Date: 20250527
  Receipt Date: 20250527
  Transmission Date: 20250716
  Serious: Yes (Hospitalization, Other)
  Sender: RANBAXY
  Company Number: NL-SUN PHARMACEUTICAL INDUSTRIES LTD-2025R1-508563

PATIENT
  Age: 41 Year
  Sex: Female

DRUGS (1)
  1. ACETAMINOPHEN [Suspect]
     Active Substance: ACETAMINOPHEN
     Indication: Product used for unknown indication
     Route: 065

REACTIONS (2)
  - Toxic epidermal necrolysis [Unknown]
  - Stevens-Johnson syndrome [Unknown]
